FAERS Safety Report 16257894 (Version 1)
Quarter: 2019Q2

REPORT INFORMATION
  Report Type: Spontaneous
  Country: US (occurrence: US)
  Receive Date: 20190430
  Receipt Date: 20190430
  Transmission Date: 20190711
  Serious: Yes (Other)
  Sender: FDA-Public Use
  Company Number: US-LUNDBECK-DKLU2068627

PATIENT
  Sex: Female

DRUGS (3)
  1. THORAZINE [Suspect]
     Active Substance: CHLORPROMAZINE
     Indication: PRODUCT USED FOR UNKNOWN INDICATION
     Route: 065
  2. VRAYLAR [Suspect]
     Active Substance: CARIPRAZINE
     Indication: PRODUCT USED FOR UNKNOWN INDICATION
     Route: 065
     Dates: start: 20190415
  3. NORTHERA [Suspect]
     Active Substance: DROXIDOPA
     Indication: ORTHOSTATIC HYPOTENSION
     Route: 048

REACTIONS (9)
  - Condition aggravated [Unknown]
  - Blood pressure decreased [Unknown]
  - Hallucination [Unknown]
  - Bipolar disorder [Recovering/Resolving]
  - Asthenia [Unknown]
  - Postural orthostatic tachycardia syndrome [Unknown]
  - Blood pressure fluctuation [Unknown]
  - Hypotension [Unknown]
  - Tachycardia [Unknown]
